FAERS Safety Report 8953397 (Version 2)
Quarter: 2013Q1

REPORT INFORMATION
  Report Type: Spontaneous
  Country: US (occurrence: US)
  Receive Date: 20121206
  Receipt Date: 20130125
  Transmission Date: 20140127
  Serious: Yes (Other)
  Sender: FDA-Public Use
  Company Number: US-ELI_LILLY_AND_COMPANY-US201212000245

PATIENT
  Sex: Male
  Weight: 92.06 kg

DRUGS (3)
  1. CIALIS [Suspect]
     Indication: ERECTILE DYSFUNCTION
     Dosage: 20 MG, PRN
     Dates: start: 20060317
  2. CIALIS [Suspect]
     Dosage: 5 MG, QD
     Route: 048
     Dates: start: 201209
  3. ZOFRAN [Concomitant]
     Indication: NAUSEA

REACTIONS (3)
  - Jaundice [Recovering/Resolving]
  - Lip swelling [Recovered/Resolved]
  - Pruritus [Recovered/Resolved]
